FAERS Safety Report 16270031 (Version 1)
Quarter: 2019Q2

REPORT INFORMATION
  Report Type: Spontaneous
  Country: PL (occurrence: PL)
  Receive Date: 20190503
  Receipt Date: 20190503
  Transmission Date: 20190711
  Serious: Yes (Hospitalization)
  Sender: FDA-Public Use
  Company Number: PL-PFIZER INC-2019184968

PATIENT
  Age: 53 Year
  Sex: Female

DRUGS (1)
  1. SUNITINIB MALATE. [Suspect]
     Active Substance: SUNITINIB MALATE
     Indication: RENAL CELL CARCINOMA
     Dosage: 50 MG, CYCLIC (4W+2W)
     Dates: start: 201211

REACTIONS (11)
  - Alanine aminotransferase increased [Unknown]
  - Haemoglobin decreased [Unknown]
  - Performance status decreased [Unknown]
  - Neoplasm progression [Unknown]
  - Hypertension [Unknown]
  - White blood cell count decreased [Unknown]
  - Asthenia [Unknown]
  - Hypotension [Unknown]
  - Dyspnoea [Unknown]
  - Sinus tachycardia [Unknown]
  - Aspartate aminotransferase increased [Unknown]

NARRATIVE: CASE EVENT DATE: 201212
